FAERS Safety Report 8733682 (Version 2)
Quarter: 2012Q4

REPORT INFORMATION
  Report Type: 
  Country: US (occurrence: US)
  Receive Date: 20120821
  Receipt Date: 20120830
  Transmission Date: 20130627
  Serious: Yes (Death)
  Sender: FDA-Public Use
  Company Number: PHEH2012US016289

PATIENT
  Age: 63 None
  Sex: Male

DRUGS (12)
  1. GLEEVEC [Suspect]
     Indication: CHRONIC MYELOID LEUKAEMIA
     Dosage: 200 mg, Daily
     Route: 048
     Dates: start: 20090821
  2. GLIMEPIRIDE [Concomitant]
  3. FLOMAX [Concomitant]
  4. PLAVIX [Concomitant]
  5. TORSEMIDE [Concomitant]
  6. SPIRONOLACTONE [Concomitant]
  7. GABAPENTIN [Concomitant]
  8. OMEPRAZOLE [Concomitant]
  9. TOPROL XL [Concomitant]
  10. AMIODARONE [Concomitant]
  11. WARFARIN [Concomitant]
  12. CRESTOR [Concomitant]

REACTIONS (1)
  - Arrhythmia [Fatal]
